FAERS Safety Report 22189634 (Version 5)
Quarter: 2024Q4

REPORT INFORMATION
  Report Type: Spontaneous
  Country: US (occurrence: US)
  Receive Date: 20230410
  Receipt Date: 20241007
  Transmission Date: 20250115
  Serious: Yes (Hospitalization, Other)
  Sender: SANOFI AVENTIS
  Company Number: US-SA-SAC20230405001545

PATIENT
  Age: 21 Year
  Sex: Male

DRUGS (10)
  1. ALPROLIX [Suspect]
     Active Substance: EFTRENONACOG ALFA
     Indication: Prophylaxis
     Dosage: 6000 IU ((+/-10%) , QW
     Route: 042
  2. ALPROLIX [Suspect]
     Active Substance: EFTRENONACOG ALFA
     Indication: Prophylaxis
     Dosage: 6000 IU ((+/-10%) , QW
     Route: 042
  3. ALPROLIX [Suspect]
     Active Substance: EFTRENONACOG ALFA
     Indication: Factor IX deficiency
     Dosage: 6000 IU, PRN
     Route: 042
  4. ALPROLIX [Suspect]
     Active Substance: EFTRENONACOG ALFA
     Indication: Factor IX deficiency
     Dosage: 6000 IU, PRN
     Route: 042
  5. ALPROLIX [Suspect]
     Active Substance: EFTRENONACOG ALFA
     Dosage: 3096 U (1 VIAL OF 2091 IU AND 1005 IU), QW
     Route: 042
  6. ALPROLIX [Suspect]
     Active Substance: EFTRENONACOG ALFA
     Dosage: 3096 U (1 VIAL OF 2091 IU AND 1005 IU), QW
     Route: 042
  7. ALPROLIX [Suspect]
     Active Substance: EFTRENONACOG ALFA
     Dosage: 1000 U (3096 UNITS (1 VIAL OF 2091 IU AND 1005 IU), QW
     Route: 042
  8. ALPROLIX [Suspect]
     Active Substance: EFTRENONACOG ALFA
     Dosage: 1000 U (3096 UNITS (1 VIAL OF 2091 IU AND 1005 IU), QW
     Route: 042
  9. ALPROLIX [Suspect]
     Active Substance: EFTRENONACOG ALFA
     Dosage: 2000 U (2091 UNITS/VIAL. 4 VIALS. INFUSE ONE 271 UNIT VIAL, ONE 562 UNIT VIAL, AND ONE 2091 UNIT VIA
     Route: 042
  10. ALPROLIX [Suspect]
     Active Substance: EFTRENONACOG ALFA
     Dosage: 2000 U (2091 UNITS/VIAL. 4 VIALS. INFUSE ONE 271 UNIT VIAL, ONE 562 UNIT VIAL, AND ONE 2091 UNIT VIA
     Route: 042

REACTIONS (6)
  - Traumatic haemorrhage [Recovered/Resolved]
  - Jaw fracture [Unknown]
  - Pain [Unknown]
  - Ligament sprain [Unknown]
  - Inappropriate schedule of product administration [Unknown]
  - Treatment noncompliance [Unknown]

NARRATIVE: CASE EVENT DATE: 20240101
